FAERS Safety Report 4791058-9 (Version None)
Quarter: 2005Q4

REPORT INFORMATION
  Report Type: 
  Country: None (occurrence: None)
  Receive Date: 20051007
  Receipt Date: 20050829
  Transmission Date: 20060501
  Serious: Yes (Hospitalization)
  Sender: FDA-Public Use
  Company Number: US-SOLVAY-00205002780

PATIENT
  Age: 24168 Day
  Sex: Male
  Weight: 78 kg

DRUGS (5)
  1. SYNTHROID [Concomitant]
     Dosage: DAILY DOSE:  UNKNOWN
     Route: 048
  2. ANDROGEL [Suspect]
     Indication: BLOOD TESTOSTERONE DECREASED
     Dosage: DAILY DOSE: 5 GRAM(S)
     Route: 062
     Dates: start: 20041216, end: 20050921
  3. HYDROCORTISONE [Concomitant]
     Dosage: DAILY DOSE:  UNKNOWN
     Route: 048
  4. HUMATROPE [Suspect]
     Dosage: DAILY DOSE: 4 MICROGRAM(S)/KILOGRAM
     Route: 065
     Dates: start: 20041216, end: 20050921
  5. DDAVP [Concomitant]
     Dosage: DAILY DOSE:  UNKNOWN
     Route: 065

REACTIONS (2)
  - ANKLE FRACTURE [None]
  - FALL [None]
